FAERS Safety Report 26020817 (Version 1)
Quarter: 2025Q4

REPORT INFORMATION
  Report Type: Spontaneous
  Country: US (occurrence: None)
  Receive Date: 20251108
  Receipt Date: 20251108
  Transmission Date: 20260118
  Serious: Yes (Hospitalization)
  Sender: FDA-CTU
  Company Number: None

PATIENT
  Age: 63 Year
  Sex: Male
  Weight: 71.2 kg

DRUGS (3)
  1. XELODA [Suspect]
     Active Substance: CAPECITABINE
     Dates: end: 20251017
  2. ELOXATIN [Suspect]
     Active Substance: OXALIPLATIN
     Dates: end: 20251003
  3. DEXAMETHASONE [Suspect]
     Active Substance: DEXAMETHASONE

REACTIONS (6)
  - Blood glucose decreased [None]
  - Hyperglycaemic hyperosmolar nonketotic syndrome [None]
  - Blood lactic acid increased [None]
  - Hypertension [None]
  - Therapy interrupted [None]
  - Haemoconcentration [None]

NARRATIVE: CASE EVENT DATE: 20251022
